FAERS Safety Report 4431829-1 (Version None)
Quarter: 2004Q3

REPORT INFORMATION
  Report Type: 
  Country: None (occurrence: None)
  Receive Date: 20040819
  Receipt Date: 20040803
  Transmission Date: 20050211
  Serious: Yes (Other)
  Sender: FDA-Public Use
  Company Number: 2004-UK00547UK

PATIENT
  Age: 41 Year
  Sex: Female

DRUGS (3)
  1. NEVIRAPINE (EU/1/97/055/001) (NEVIRAPINE) (NR) (NEVIRAPINE) [Suspect]
     Indication: HIV INFECTION
     Dosage: 400 MG (NR, NOT REPORTED); PO
     Route: 048
  2. NELFINAVIR (NELFINAVIR) (NR) [Concomitant]
  3. DIDANOSINE (DIDANOSINE) (NR) [Concomitant]

REACTIONS (3)
  - ABORTION INDUCED [None]
  - DRUG EXPOSURE DURING PREGNANCY [None]
  - PREGNANCY [None]
